FAERS Safety Report 14807854 (Version 1)
Quarter: 2018Q2

REPORT INFORMATION
  Report Type: Spontaneous
  Country: US (occurrence: US)
  Receive Date: 20180425
  Receipt Date: 20180425
  Transmission Date: 20180711
  Serious: Yes (Death, Hospitalization, Other)
  Sender: FDA-Public Use
  Company Number: US-MYLANLABS-2018M1027420

PATIENT
  Age: 54 Year
  Sex: Male

DRUGS (3)
  1. FLUOROURACIL. [Suspect]
     Active Substance: FLUOROURACIL
     Indication: SQUAMOUS CELL CARCINOMA OF THE TONGUE
     Dosage: OPTIMA TRIAL (DOSE REDUCED CHEMORADIOTHERAPY)
     Route: 065
  2. HYDROXYUREA. [Concomitant]
     Active Substance: HYDROXYUREA
     Indication: SQUAMOUS CELL CARCINOMA OF THE TONGUE
     Dosage: OPTIMA TRIAL (DOSE REDUCED CHEMORADIOTHERAPY)
     Route: 065
  3. PACLITAXEL. [Concomitant]
     Active Substance: PACLITAXEL
     Indication: SQUAMOUS CELL CARCINOMA OF THE TONGUE
     Dosage: OPTIMA TRIAL (DOSE REDUCED CHEMORADIOTHERAPY)
     Route: 065

REACTIONS (9)
  - Haemodynamic instability [Fatal]
  - Toxic epidermal necrolysis [Fatal]
  - Pancytopenia [Fatal]
  - Stenotrophomonas infection [Fatal]
  - Sepsis [Fatal]
  - Acute kidney injury [Fatal]
  - Renal tubular necrosis [Fatal]
  - Toxicity to various agents [Fatal]
  - Diarrhoea [Fatal]
